FAERS Safety Report 16426653 (Version 1)
Quarter: 2019Q2

REPORT INFORMATION
  Report Type: Spontaneous
  Country: US (occurrence: US)
  Receive Date: 20190613
  Receipt Date: 20190613
  Transmission Date: 20190711
  Serious: No
  Sender: FDA-Public Use
  Company Number: US-TEVA-2019-US-1054154

PATIENT
  Sex: Male

DRUGS (1)
  1. GABAPENTIN ACTAVIS [Suspect]
     Active Substance: GABAPENTIN

REACTIONS (3)
  - Insomnia [Unknown]
  - Product label issue [Unknown]
  - Product label confusion [Unknown]
